FAERS Safety Report 7693802-X (Version None)
Quarter: 2011Q3

REPORT INFORMATION
  Report Type: 
  Country: None (occurrence: None)
  Receive Date: 20110819
  Receipt Date: 20110621
  Transmission Date: 20111222
  Serious: No
  Sender: FDA-Public Use
  Company Number: US-ALLERGAN-1107980US

PATIENT
  Age: 53 Year
  Sex: Female

DRUGS (3)
  1. LASTACAFT [Suspect]
     Indication: EYE PRURITUS
     Dosage: 1 GTT, SINGLE
     Route: 047
  2. LASTACAFT [Suspect]
     Indication: HYPERSENSITIVITY
     Dosage: 2 GTT, QD
     Route: 047
     Dates: start: 20110529, end: 20110612
  3. BLINK                              /00582501/ [Concomitant]

REACTIONS (5)
  - BLEPHARITIS [None]
  - CONJUNCTIVITIS ALLERGIC [None]
  - OCULAR HYPERAEMIA [None]
  - LACRIMATION INCREASED [None]
  - EYE DISCHARGE [None]
